FAERS Safety Report 5672991-2 (Version None)
Quarter: 2008Q1

REPORT INFORMATION
  Report Type: 
  Country: None (occurrence: None)
  Receive Date: 20080319
  Receipt Date: 20080220
  Transmission Date: 20080703
  Serious: No
  Sender: FDA-Public Use
  Company Number: US-ASTRAZENECA-2008UW03414

PATIENT
  Age: 73 Year
  Sex: Female

DRUGS (5)
  1. SYMBICORT [Suspect]
     Indication: ASTHMA
     Route: 055
     Dates: start: 20071201
  2. SYMBICORT [Suspect]
     Route: 055
  3. CARDIZEM [Concomitant]
  4. DIOVAN [Concomitant]
  5. NEXIUM [Concomitant]
     Route: 048

REACTIONS (5)
  - DISORIENTATION [None]
  - DIZZINESS [None]
  - DRUG INEFFECTIVE [None]
  - HYPOAESTHESIA ORAL [None]
  - URTICARIA [None]
